FAERS Safety Report 13389178 (Version 1)
Quarter: 2017Q1

REPORT INFORMATION
  Report Type: Report from Study
  Country: CA (occurrence: CA)
  Receive Date: 20170330
  Receipt Date: 20170330
  Transmission Date: 20170429
  Serious: Yes (Hospitalization, Other)
  Sender: FDA-Public Use
  Company Number: CA-AMGEN-CANSL2017047509

PATIENT
  Age: 88 Year
  Sex: Male

DRUGS (4)
  1. VITAMIN D [Concomitant]
     Active Substance: CHOLECALCIFEROL
     Dosage: UNK
  2. ARANESP [Suspect]
     Active Substance: DARBEPOETIN ALFA
     Indication: PROSTATE CANCER METASTATIC
     Dosage: 40 MUG, UNK
     Route: 065
     Dates: start: 20160816
  3. BICALUTAMIDE. [Concomitant]
     Active Substance: BICALUTAMIDE
     Indication: NEOPLASM MALIGNANT
     Dosage: UNK UNK, Q6MO
  4. BABY ASPIRIN [Concomitant]
     Active Substance: ASPIRIN
     Dosage: UNK

REACTIONS (12)
  - Faeces discoloured [Recovered/Resolved]
  - Joint injury [Unknown]
  - Rib fracture [Unknown]
  - Fall [Unknown]
  - Upper limb fracture [Unknown]
  - Cerebrovascular accident [Unknown]
  - Cardiac disorder [Unknown]
  - Renal disorder [Unknown]
  - Diarrhoea [Recovered/Resolved]
  - Blood calcium increased [Unknown]
  - Blood urine present [Unknown]
  - Back disorder [Unknown]

NARRATIVE: CASE EVENT DATE: 201703
